FAERS Safety Report 16417149 (Version 1)
Quarter: 2019Q2

REPORT INFORMATION
  Report Type: Spontaneous
  Country: IT (occurrence: IT)
  Receive Date: 20190611
  Receipt Date: 20190611
  Transmission Date: 20190711
  Serious: Yes (Hospitalization)
  Sender: FDA-Public Use
  Company Number: PHHY2019IT118666

PATIENT
  Age: 14 Year
  Sex: Male
  Weight: 61 kg

DRUGS (5)
  1. VIMPAT [Concomitant]
     Active Substance: LACOSAMIDE
     Indication: EPILEPSY
     Dosage: UNK
     Route: 048
  2. TEGRETOL [Suspect]
     Active Substance: CARBAMAZEPINE
     Indication: EPILEPSY
     Dosage: 1500 MG, QD
     Route: 048
     Dates: start: 20100301
  3. KEPPRA [Suspect]
     Active Substance: LEVETIRACETAM
     Dosage: 4500 MG, QD
     Route: 048
     Dates: start: 20190513
  4. TEGRETOL [Suspect]
     Active Substance: CARBAMAZEPINE
     Dosage: 1500 MG, QD
     Route: 048
     Dates: start: 20190316
  5. KEPPRA [Suspect]
     Active Substance: LEVETIRACETAM
     Indication: EPILEPSY
     Dosage: 4500 MG, QD
     Route: 048
     Dates: start: 20061101

REACTIONS (3)
  - Hallucination [Not Recovered/Not Resolved]
  - Overdose [Unknown]
  - Off label use [Unknown]

NARRATIVE: CASE EVENT DATE: 20061101
